FAERS Safety Report 25882945 (Version 1)
Quarter: 2025Q4

REPORT INFORMATION
  Report Type: Spontaneous
  Country: EU (occurrence: EU)
  Receive Date: 20251006
  Receipt Date: 20251006
  Transmission Date: 20260118
  Serious: Yes (Other)
  Sender: ROCHE
  Company Number: EU-ROCHE-10000390369

PATIENT
  Age: 46 Year
  Sex: Female

DRUGS (1)
  1. BEVACIZUMAB [Suspect]
     Active Substance: BEVACIZUMAB
     Indication: Gliosarcoma
     Route: 065

REACTIONS (2)
  - Renal-limited thrombotic microangiopathy [Recovering/Resolving]
  - Off label use [Unknown]
